FAERS Safety Report 15041447 (Version 1)
Quarter: 2018Q2

REPORT INFORMATION
  Report Type: Spontaneous
  Country: IT (occurrence: IT)
  Receive Date: 20180621
  Receipt Date: 20180621
  Transmission Date: 20180711
  Serious: Yes (Other)
  Sender: FDA-Public Use
  Company Number: IT-B.I. PHARMACEUTICALS,INC./RIDGEFIELD-2018-12-002053

PATIENT
  Age: 67 Year

DRUGS (8)
  1. MERREM [Concomitant]
     Active Substance: MEROPENEM
     Indication: PRODUCT USED FOR UNKNOWN INDICATION
     Route: 065
  2. CUBICIN [Concomitant]
     Active Substance: DAPTOMYCIN
     Indication: PRODUCT USED FOR UNKNOWN INDICATION
     Dosage: POWDER FOR SOLUTION FOR INJECTION OR INFUSION
     Route: 065
  3. NORVASC [Suspect]
     Active Substance: AMLODIPINE BESYLATE
     Indication: HYPERTENSION
     Route: 065
     Dates: start: 20180316
  4. RIFADIN [Concomitant]
     Active Substance: RIFAMPIN
     Indication: PRODUCT USED FOR UNKNOWN INDICATION
     Route: 065
  5. CATAPRESAN [Suspect]
     Active Substance: CLONIDINE
     Indication: HYPERTENSION
     Route: 030
     Dates: start: 20180319
  6. NORVASC [Suspect]
     Active Substance: AMLODIPINE BESYLATE
     Route: 065
  7. PLAUNAZIDE [Suspect]
     Active Substance: HYDROCHLOROTHIAZIDE\OLMESARTAN MEDOXOMIL
     Indication: HYPERTENSION
     Dosage: 20 MG/12,5 MG COMPRESSE RIVESTITE CON FILM
     Route: 048
     Dates: start: 20180320
  8. PREFOLIC [Concomitant]
     Active Substance: LEUCOVORIN CALCIUM
     Indication: PRODUCT USED FOR UNKNOWN INDICATION
     Route: 065

REACTIONS (1)
  - Hypertensive crisis [Recovering/Resolving]

NARRATIVE: CASE EVENT DATE: 20180320
